FAERS Safety Report 12355952 (Version 1)
Quarter: 2016Q2

REPORT INFORMATION
  Report Type: Spontaneous
  Country: FR (occurrence: FR)
  Receive Date: 20160511
  Receipt Date: 20160511
  Transmission Date: 20160815
  Serious: No
  Sender: FDA-Public Use
  Company Number: FR-QOL MEDICAL, LLC-1051909

PATIENT
  Age: 9 Year
  Sex: Female

DRUGS (1)
  1. SUCRAID [Suspect]
     Active Substance: SACROSIDASE
     Indication: SUCRASE-ISOMALTASE DEFICIENCY
     Route: 048
     Dates: start: 2008, end: 2015

REACTIONS (5)
  - Anorectal discomfort [None]
  - Abdominal pain [Unknown]
  - Product taste abnormal [None]
  - Proctalgia [Unknown]
  - Product quality issue [None]

NARRATIVE: CASE EVENT DATE: 20150801
